FAERS Safety Report 20463895 (Version 1)
Quarter: 2022Q1

REPORT INFORMATION
  Report Type: Spontaneous
  Country: US (occurrence: US)
  Receive Date: 20220211
  Receipt Date: 20220211
  Transmission Date: 20220423
  Serious: Yes (Death, Other)
  Sender: FDA-Public Use
  Company Number: US-NOVARTISPH-NVSC2022US031272

PATIENT
  Age: 68 Year
  Sex: Male

DRUGS (2)
  1. RANITIDINE [Suspect]
     Active Substance: RANITIDINE
     Indication: Myocardial infarction
     Dosage: 150 MG,,DAILY,
     Route: 048
     Dates: start: 200001, end: 202003
  2. RANITIDINE [Suspect]
     Active Substance: RANITIDINE
     Indication: Myocardial infarction
     Dosage: 150 MG,,DAILY,
     Route: 048
     Dates: start: 200001, end: 202003

REACTIONS (3)
  - Prostate cancer [Unknown]
  - Death [Fatal]
  - Incorrect dose administered [Unknown]

NARRATIVE: CASE EVENT DATE: 20180901
